FAERS Safety Report 21524837 (Version 1)
Quarter: 2022Q4

REPORT INFORMATION
  Report Type: Spontaneous
  Country: RO (occurrence: RO)
  Receive Date: 20221030
  Receipt Date: 20221030
  Transmission Date: 20230113
  Serious: Yes (Life-Threatening)
  Sender: FDA-Public Use
  Company Number: None

PATIENT
  Age: 65 Year
  Sex: Male

DRUGS (9)
  1. OXALIPLATIN [Suspect]
     Active Substance: OXALIPLATIN
     Indication: Rectal neoplasm
     Dosage: 217 MG
     Route: 042
     Dates: start: 20221013, end: 20221013
  2. DEXAMETAZONA [DEXAMETHASONE] [Concomitant]
     Dosage: 1 DF
     Route: 042
  3. VITAMINA B1 [Concomitant]
     Dosage: 2 DF
     Route: 042
  4. LORATADINE [Concomitant]
     Active Substance: LORATADINE
     Dosage: 10 MG
     Route: 048
  5. PANTOPRAZOLE [Concomitant]
     Active Substance: PANTOPRAZOLE
     Dosage: 40 MG
     Route: 042
  6. VITAMINA B6 [Concomitant]
     Dosage: 2 DF
     Route: 042
  7. CALCIUM GLUCONATE [Concomitant]
     Active Substance: CALCIUM GLUCONATE
     Dosage: 1 DF
     Route: 042
  8. METOCLOPRAMIDE [Concomitant]
     Active Substance: METOCLOPRAMIDE
     Dosage: 10 MG
     Route: 042
  9. ONDANSETRON HYDROCHLORIDE [Concomitant]
     Active Substance: ONDANSETRON HYDROCHLORIDE
     Dosage: 16 MG
     Route: 042

REACTIONS (3)
  - Vision blurred [Recovered/Resolved]
  - Vertigo [Recovered/Resolved]
  - Hypertension [Recovered/Resolved]
